FAERS Safety Report 9972981 (Version 1)
Quarter: 2014Q1

REPORT INFORMATION
  Report Type: Spontaneous
  Country: US (occurrence: None)
  Receive Date: 20140128
  Receipt Date: 20140128
  Transmission Date: 20141002
  Serious: No
  Sender: FDA-Public Use
  Company Number: A-US2013-79735

PATIENT
  Age: 47 Year
  Sex: Female

DRUGS (2)
  1. TRACLEER (BOSENTAN) TABLET [Suspect]
     Indication: PULMONARY ARTERIAL HYPERTENSION
     Route: 048
  2. TYVASO (TREPROSTINIL SODIUM) [Concomitant]

REACTIONS (1)
  - Dyspnoea exertional [None]
